FAERS Safety Report 8242832-8 (Version None)
Quarter: 2012Q1

REPORT INFORMATION
  Report Type: 
  Country: None (occurrence: None)
  Receive Date: 20120329
  Receipt Date: 20120323
  Transmission Date: 20120608
  Serious: Yes (Hospitalization, Other)
  Sender: FDA-Public Use
  Company Number: US-BAYER-2011-108468

PATIENT
  Age: 37 Year
  Sex: Female
  Weight: 82.993 kg

DRUGS (2)
  1. LEXAPRO [Concomitant]
     Indication: ANXIETY
     Dosage: 1 DF, QD, ON/OFF
     Dates: start: 20060101
  2. YAZ [Suspect]
     Indication: CONTRACEPTION
     Dosage: UNK
     Dates: start: 20071024, end: 20091202

REACTIONS (5)
  - INJURY [None]
  - ANHEDONIA [None]
  - PAIN [None]
  - EMOTIONAL DISTRESS [None]
  - DEEP VEIN THROMBOSIS [None]
